FAERS Safety Report 9311417 (Version 2)
Quarter: 2013Q2

REPORT INFORMATION
  Report Type: Spontaneous
  Country: US (occurrence: US)
  Receive Date: 20130528
  Receipt Date: 20130528
  Transmission Date: 20140414
  Serious: No
  Sender: FDA-Public Use
  Company Number: US-MYLANLABS-2013S1009534

PATIENT
  Age: 71 Year
  Sex: Female
  Weight: 53.52 kg

DRUGS (4)
  1. OCTREOTIDE ACETATE [Suspect]
     Indication: DIARRHOEA
     Route: 058
     Dates: start: 201208, end: 20130428
  2. OCTREOTIDE ACETATE [Suspect]
     Indication: DIARRHOEA
     Route: 058
     Dates: start: 20130429
  3. DIPHENOXYLATE HYDROCHLORIDE AND ATROPINE SULFATE TABLETS [Suspect]
     Indication: DIARRHOEA
     Dosage: 2 TABLETS
     Route: 048
  4. KLOR CON [Concomitant]
     Route: 048

REACTIONS (2)
  - Diarrhoea [Recovered/Resolved]
  - Drug ineffective [Recovered/Resolved]
